FAERS Safety Report 11708293 (Version 1)
Quarter: 2015Q4

REPORT INFORMATION
  Report Type: Report from Study
  Country: KR (occurrence: KR)
  Receive Date: 20151107
  Receipt Date: 20151107
  Transmission Date: 20160304
  Serious: No
  Sender: FDA-Public Use
  Company Number: PHHY2015KR145328

PATIENT
  Age: 67 Year
  Sex: Male

DRUGS (6)
  1. TASIGNA [Suspect]
     Active Substance: NILOTINIB
     Indication: CHRONIC MYELOID LEUKAEMIA
     Dosage: 600 MG, QD
     Route: 048
     Dates: start: 20150722, end: 20150813
  2. TRIAMCINOLONE [Concomitant]
     Active Substance: TRIAMCINOLONE
     Indication: POLYNEUROPATHY
     Dosage: 20 MG, UNK
     Route: 042
     Dates: start: 20150722, end: 20150722
  3. TASIGNA [Suspect]
     Active Substance: NILOTINIB
     Dosage: 400 MG, QD
     Route: 048
     Dates: start: 20150828
  4. ACETAMINOPHEN. [Concomitant]
     Active Substance: ACETAMINOPHEN
     Indication: POLYNEUROPATHY
     Dosage: 3 DF, UNK
     Route: 048
     Dates: start: 20150715, end: 20151002
  5. TRAMADOL. [Concomitant]
     Active Substance: TRAMADOL
     Indication: POLYNEUROPATHY
     Dosage: 3 DF, UNK
     Route: 048
     Dates: start: 20150715, end: 20151002
  6. GABAPENTIN. [Concomitant]
     Active Substance: GABAPENTIN
     Indication: POLYNEUROPATHY
     Dosage: 600 MG, UNK
     Route: 048
     Dates: start: 20150715, end: 20151002

REACTIONS (1)
  - Constipation [Recovered/Resolved]

NARRATIVE: CASE EVENT DATE: 20150910
